FAERS Safety Report 6200834-7 (Version None)
Quarter: 2009Q2

REPORT INFORMATION
  Report Type: 
  Country: None (occurrence: None)
  Receive Date: 20090522
  Receipt Date: 20080925
  Transmission Date: 20091009
  Serious: No
  Sender: FDA-Public Use
  Company Number: US-ALEXION-A200800249

PATIENT

DRUGS (1)
  1. SOLIRIS [Suspect]
     Dosage: UNK, UNK

REACTIONS (1)
  - SERUM FERRITIN INCREASED [None]
